FAERS Safety Report 23878574 (Version 2)
Quarter: 2024Q2

REPORT INFORMATION
  Report Type: Report from Study
  Country: US (occurrence: US)
  Receive Date: 20240521
  Receipt Date: 20240614
  Transmission Date: 20240716
  Serious: Yes (Hospitalization, Other)
  Sender: FDA-Public Use
  Company Number: US-BAYER-2024A066511

PATIENT
  Age: 81 Year
  Sex: Female

DRUGS (13)
  1. KERENDIA [Suspect]
     Active Substance: FINERENONE
     Dosage: 20 MG, QD
     Route: 048
  2. LOSARTAN [Concomitant]
     Active Substance: LOSARTAN
     Dosage: 100 MG, QD
     Route: 048
  3. INSULIN NOS [Concomitant]
     Active Substance: INSULIN NOS
     Dosage: UNK UNK, TID
     Route: 058
  4. ATORVASTATIN [Concomitant]
     Active Substance: ATORVASTATIN
     Dosage: 40 MG
     Route: 048
  5. ASPIRIN [Concomitant]
     Active Substance: ASPIRIN
     Dosage: 325 MG, QD
  6. HYDRALAZINE [Concomitant]
     Active Substance: HYDRALAZINE HYDROCHLORIDE
     Dosage: 100 MG, QD
     Route: 048
  7. ALBUTEROL [Concomitant]
     Active Substance: ALBUTEROL
  8. CHOLECALCIFEROL [Concomitant]
     Active Substance: CHOLECALCIFEROL
     Dosage: 25 MG, QD
     Route: 048
  9. PANTOPRAZOLE [Concomitant]
     Active Substance: PANTOPRAZOLE
     Dosage: 40 MG
     Route: 048
  10. BUMETANIDE [Concomitant]
     Active Substance: BUMETANIDE
     Dosage: 1 MG, QD
     Route: 048
  11. DAPAGLIFLOZIN [Concomitant]
     Active Substance: DAPAGLIFLOZIN
     Dosage: 10 MG, QD
     Route: 048
  12. LEVOTHYROXINE [Concomitant]
     Active Substance: LEVOTHYROXINE\LEVOTHYROXINE SODIUM
     Dosage: 100 ?G
     Route: 048
  13. POLYETHYLENE GLYCOL 3350 [Suspect]
     Active Substance: POLYETHYLENE GLYCOL 3350
     Dosage: 17 MG, QD
     Route: 048

REACTIONS (11)
  - Urinary tract infection [Recovered/Resolved]
  - Acute kidney injury [Recovering/Resolving]
  - Asthenia [Not Recovered/Not Resolved]
  - Anaemia [None]
  - Chronic kidney disease [Recovering/Resolving]
  - Cystitis [None]
  - Haematuria [None]
  - Blood creatinine increased [Recovering/Resolving]
  - Dementia [None]
  - Confusional state [None]
  - Metabolic acidosis [None]

NARRATIVE: CASE EVENT DATE: 20240415
